FAERS Safety Report 23999498 (Version 1)
Quarter: 2024Q2

REPORT INFORMATION
  Report Type: Spontaneous
  Country: US (occurrence: US)
  Receive Date: 20240621
  Receipt Date: 20240621
  Transmission Date: 20240717
  Serious: No
  Sender: FDA-Public Use
  Company Number: US-SA-SAC20240613001194

PATIENT
  Age: 7 Year
  Sex: Female
  Weight: 23.5 kg

DRUGS (1)
  1. DUPIXENT [Suspect]
     Active Substance: DUPILUMAB
     Indication: Dermatitis
     Dosage: 300 MG, QM
     Route: 058

REACTIONS (2)
  - Dermatitis [Unknown]
  - Product use in unapproved indication [Unknown]
